FAERS Safety Report 7084078-5 (Version None)
Quarter: 2010Q4

REPORT INFORMATION
  Report Type: 
  Country: None (occurrence: None)
  Receive Date: 20101104
  Receipt Date: 20101029
  Transmission Date: 20110411
  Serious: Yes (Life-Threatening, Other)
  Sender: FDA-Public Use
  Company Number: JP-CEPHALON-2010005757

PATIENT
  Age: 19 Year
  Sex: Female

DRUGS (9)
  1. TRISENOX [Suspect]
     Indication: ACUTE PROMYELOCYTIC LEUKAEMIA
     Route: 041
     Dates: start: 20100918, end: 20101017
  2. VESANOID [Concomitant]
     Route: 048
     Dates: start: 20100928, end: 20101004
  3. BROACT [Concomitant]
     Dates: start: 20101002, end: 20101005
  4. ITRACONAZOLE [Concomitant]
     Dates: start: 20101004
  5. VANCOMYCIN HYDROCHLORIDE [Concomitant]
     Dates: start: 20101005, end: 20101013
  6. VANCOMYCIN HYDROCHLORIDE [Concomitant]
     Dates: start: 20101018
  7. ZOSYN [Concomitant]
     Dates: start: 20101006, end: 20101023
  8. FAMOTIDINE [Concomitant]
     Dates: start: 20101021, end: 20101028
  9. SULFAMETHOXAZOLE AND TRIMETHOPRIM [Concomitant]
     Dates: start: 20101022, end: 20101023

REACTIONS (2)
  - ACUTE PROMYELOCYTIC LEUKAEMIA DIFFERENTIATION SYNDROME [None]
  - HEPATIC FUNCTION ABNORMAL [None]
